FAERS Safety Report 12610517 (Version 1)
Quarter: 2016Q3

REPORT INFORMATION
  Report Type: Report from Study
  Country: CA (occurrence: CA)
  Receive Date: 20160801
  Receipt Date: 20160801
  Transmission Date: 20161109
  Serious: Yes (Other)
  Sender: FDA-Public Use
  Company Number: CA-JNJFOC-20160724935

PATIENT
  Age: 14 Year
  Sex: Female
  Weight: 59.1 kg

DRUGS (2)
  1. REMICADE [Suspect]
     Active Substance: INFLIXIMAB
     Indication: CROHN^S DISEASE
     Route: 042
     Dates: start: 20160726
  2. REMICADE [Suspect]
     Active Substance: INFLIXIMAB
     Indication: CROHN^S DISEASE
     Route: 042
     Dates: start: 20150226

REACTIONS (5)
  - Burning sensation [Unknown]
  - Abdominal pain [Unknown]
  - Erythema [Unknown]
  - Pruritus [Unknown]
  - Wound [Unknown]

NARRATIVE: CASE EVENT DATE: 201607
